FAERS Safety Report 15260626 (Version 2)
Quarter: 2018Q3

REPORT INFORMATION
  Report Type: Report from Study
  Country: NO (occurrence: NO)
  Receive Date: 20180809
  Receipt Date: 20180813
  Transmission Date: 20181010
  Serious: Yes (Death, Hospitalization, Other)
  Sender: FDA-Public Use
  Company Number: PHHY2018NO063664

PATIENT
  Age: 83 Year
  Sex: Male

DRUGS (3)
  1. NIVOLUMAB [Suspect]
     Active Substance: NIVOLUMAB
     Indication: PRODUCT USED FOR UNKNOWN INDICATION
     Dosage: UNK
     Route: 065
     Dates: start: 20180626
  2. TRAMETINIB [Suspect]
     Active Substance: TRAMETINIB
     Indication: MALIGNANT MELANOMA
     Dosage: 2 MG, QD
     Route: 048
     Dates: start: 20180228, end: 20180621
  3. TAFINLAR [Suspect]
     Active Substance: DABRAFENIB MESYLATE
     Indication: MALIGNANT MELANOMA
     Dosage: 150 MG, BID
     Route: 048
     Dates: start: 20180216, end: 20180621

REACTIONS (14)
  - Atrial fibrillation [Recovered/Resolved]
  - Ascites [Recovering/Resolving]
  - C-reactive protein increased [Unknown]
  - Blood sodium decreased [Unknown]
  - Vomiting [Fatal]
  - Gastrointestinal haemorrhage [Fatal]
  - Respiratory failure [Fatal]
  - Hyponatraemia [Fatal]
  - Malignant melanoma [Unknown]
  - Blood albumin decreased [Unknown]
  - Aspiration [Fatal]
  - Urinary tract infection [Recovering/Resolving]
  - Malignant neoplasm progression [Unknown]
  - White blood cell count increased [Unknown]

NARRATIVE: CASE EVENT DATE: 20180621
